FAERS Safety Report 10631788 (Version 2)
Quarter: 2014Q4

REPORT INFORMATION
  Report Type: Spontaneous
  Country: US (occurrence: US)
  Receive Date: 20141205
  Receipt Date: 20141205
  Transmission Date: 20150529
  Serious: No
  Sender: FDA-Public Use
  Company Number: US-BRISTOL-MYERS SQUIBB COMPANY-21470885

PATIENT
  Age: 66 Year
  Sex: Male
  Weight: 131.52 kg

DRUGS (6)
  1. TESTOSTERONE. [Suspect]
     Active Substance: TESTOSTERONE
  2. VITAMIN C [Concomitant]
     Active Substance: ASCORBIC ACID
  3. VITAMIN A [Concomitant]
     Active Substance: VITAMIN A
  4. OMEGA [Concomitant]
     Active Substance: CONVALLARIA MAJALIS\CRATAEGUS LAEVIGATA LEAF\PROXYPHYLLINE
  5. FARXIGA [Suspect]
     Active Substance: DAPAGLIFLOZIN PROPANEDIOL
     Indication: TYPE 2 DIABETES MELLITUS
     Dosage: START/STOP: 2-3 MONTHS AGO?CUTTING HIS 5MG PILL IN HALF AND ONLY TAKING 2.5MG ?LAST DOSE: 21JUN14
     Route: 048
  6. METFORMIN HCL [Suspect]
     Active Substance: METFORMIN HYDROCHLORIDE

REACTIONS (8)
  - Constipation [Unknown]
  - Pollakiuria [Unknown]
  - Hyperhidrosis [Unknown]
  - Abdominal distension [Unknown]
  - Blood glucose decreased [Unknown]
  - Wrong technique in drug usage process [Unknown]
  - Chromaturia [Unknown]
  - Hyperglycaemia [Recovering/Resolving]
